FAERS Safety Report 7825149-2 (Version None)
Quarter: 2011Q4

REPORT INFORMATION
  Report Type: 
  Country: None (occurrence: None)
  Receive Date: 20111019
  Receipt Date: 20111010
  Transmission Date: 20120403
  Serious: Yes (Hospitalization, Other)
  Sender: FDA-Public Use
  Company Number: FR-JNJFOC-20111005883

PATIENT
  Age: 86 Year
  Sex: Female

DRUGS (5)
  1. DURAGESIC-100 [Suspect]
     Dosage: 2X12UG
     Route: 062
     Dates: start: 20111001
  2. DURAGESIC-100 [Suspect]
     Indication: PAIN
     Route: 062
     Dates: start: 20111001
  3. DURAGESIC-100 [Suspect]
     Dosage: 2X12UG
     Route: 062
     Dates: start: 20111001
  4. MORPHINE [Suspect]
     Indication: PAIN
     Dosage: 12HOURS PER DAY NOT ON THE NIGHT
     Route: 050
  5. DURAGESIC-100 [Suspect]
     Route: 062
     Dates: start: 20111001

REACTIONS (3)
  - TOXICITY TO VARIOUS AGENTS [None]
  - PAIN [None]
  - INAPPROPRIATE SCHEDULE OF DRUG ADMINISTRATION [None]
